FAERS Safety Report 12891826 (Version 2)
Quarter: 2016Q4

REPORT INFORMATION
  Report Type: Report from Study
  Country: None (occurrence: CA)
  Receive Date: 20161028
  Receipt Date: 20161031
  Transmission Date: 20170207
  Serious: Yes (Other)
  Sender: FDA-Public Use
  Company Number: CA-ABBVIE-16K-028-1762814-00

PATIENT
  Sex: Male

DRUGS (1)
  1. HUMIRA [Suspect]
     Active Substance: ADALIMUMAB
     Indication: ANKYLOSING SPONDYLITIS
     Route: 058
     Dates: start: 20160611

REACTIONS (9)
  - Limb injury [Unknown]
  - Pain [Not Recovered/Not Resolved]
  - Alcohol poisoning [Recovered/Resolved]
  - Post-traumatic pain [Not Recovered/Not Resolved]
  - Impaired healing [Not Recovered/Not Resolved]
  - Neck injury [Not Recovered/Not Resolved]
  - Loss of consciousness [Recovered/Resolved]
  - Thermal burn [Unknown]
  - Fall [Unknown]

NARRATIVE: CASE EVENT DATE: 2016
